FAERS Safety Report 4908104-1 (Version None)
Quarter: 2006Q1

REPORT INFORMATION
  Report Type: 
  Country: None (occurrence: None)
  Receive Date: 20060210
  Receipt Date: 20060201
  Transmission Date: 20060701
  Serious: Yes (Other)
  Sender: FDA-Public Use
  Company Number: 2006GB00186

PATIENT
  Sex: Female

DRUGS (1)
  1. MERONEM [Suspect]
     Indication: NOSOCOMIAL INFECTION
     Route: 042
     Dates: start: 20050701

REACTIONS (2)
  - DRUG HYPERSENSITIVITY [None]
  - RASH [None]
